FAERS Safety Report 7730621-X (Version None)
Quarter: 2011Q3

REPORT INFORMATION
  Report Type: 
  Country: None (occurrence: None)
  Receive Date: 20110906
  Receipt Date: 20110829
  Transmission Date: 20111222
  Serious: Yes (Other)
  Sender: FDA-Public Use
  Company Number: US-AMGEN-USASP2011044404

PATIENT
  Age: 61 Year
  Sex: Female

DRUGS (1)
  1. ENBREL [Suspect]
     Indication: RHEUMATOID ARTHRITIS
     Dosage: 50 MG, QWK
     Dates: start: 20090101, end: 20110819

REACTIONS (13)
  - ABDOMINAL PAIN [None]
  - NEPHROLITHIASIS [None]
  - DIZZINESS [None]
  - DISORIENTATION [None]
  - HEPATIC STEATOSIS [None]
  - GAIT DISTURBANCE [None]
  - ASTHENIA [None]
  - DYSURIA [None]
  - BACK PAIN [None]
  - FATIGUE [None]
  - DISTURBANCE IN ATTENTION [None]
  - ABDOMINAL DISTENSION [None]
  - FINGER DEFORMITY [None]
